FAERS Safety Report 16640966 (Version 1)
Quarter: 2019Q3

REPORT INFORMATION
  Report Type: Spontaneous
  Country: JP (occurrence: JP)
  Receive Date: 20190729
  Receipt Date: 20190729
  Transmission Date: 20191004
  Serious: Yes (Hospitalization)
  Sender: FDA-Public Use
  Company Number: JP-ROCHE-2363082

PATIENT
  Age: 57 Year
  Sex: Male
  Weight: 56 kg

DRUGS (8)
  1. CARBOPLATIN. [Concomitant]
     Active Substance: CARBOPLATIN
     Indication: LARGE CELL LUNG CANCER
     Route: 041
     Dates: start: 20190319, end: 20190319
  2. POLARAMINE [Concomitant]
     Active Substance: DEXCHLORPHENIRAMINE MALEATE
     Dosage: DOSAGE IS UNCERTAIN.
     Route: 065
     Dates: start: 20190319, end: 20190319
  3. GRANISETRON [Concomitant]
     Active Substance: GRANISETRON
     Dosage: DOSAGE IS UNCERTAIN.
     Route: 065
     Dates: start: 20190319, end: 20190319
  4. TECENTRIQ [Suspect]
     Active Substance: ATEZOLIZUMAB
     Indication: LARGE CELL LUNG CANCER
     Route: 041
     Dates: start: 20190319, end: 20190319
  5. DEXART [Concomitant]
     Active Substance: DEXAMETHASONE SODIUM PHOSPHATE
     Route: 065
     Dates: start: 20190319, end: 20190319
  6. AVASTIN [Suspect]
     Active Substance: BEVACIZUMAB
     Indication: LARGE CELL LUNG CANCER
     Route: 042
     Dates: start: 20190319, end: 20190319
  7. PACLITAXEL. [Concomitant]
     Active Substance: PACLITAXEL
     Indication: LARGE CELL LUNG CANCER
     Route: 041
     Dates: start: 20190319, end: 20190319
  8. GASTER [FAMOTIDINE] [Concomitant]
     Route: 065
     Dates: start: 20190319, end: 20190319

REACTIONS (1)
  - Encephalopathy [Recovered/Resolved]

NARRATIVE: CASE EVENT DATE: 20190327
